FAERS Safety Report 21637829 (Version 8)
Quarter: 2024Q2

REPORT INFORMATION
  Report Type: Spontaneous
  Country: US (occurrence: US)
  Receive Date: 20221124
  Receipt Date: 20240604
  Transmission Date: 20240716
  Serious: No
  Sender: FDA-Public Use
  Company Number: US-BRISTOL-MYERS SQUIBB COMPANY-2022-140101

PATIENT
  Age: 80 Year
  Sex: Female

DRUGS (4)
  1. REVLIMID [Suspect]
     Active Substance: LENALIDOMIDE
     Indication: Plasma cell myeloma
     Route: 048
     Dates: start: 20210203
  2. REVLIMID [Suspect]
     Active Substance: LENALIDOMIDE
     Indication: Plasma cell myeloma in remission
     Route: 048
     Dates: start: 20240213
  3. REVLIMID [Suspect]
     Active Substance: LENALIDOMIDE
     Dosage: TAKE 1 CAPSULE BY MOUTH EVERY DAY FOR 21 DAYS ON WITH 7 DAYS OFF
     Route: 048
  4. REVLIMID [Suspect]
     Active Substance: LENALIDOMIDE
     Dosage: TAKE 1 CAPSULE BY MOUTH EVERY DAY FOR 21 DAYS ON WITH 7 DAYS OFF
     Route: 048

REACTIONS (15)
  - Musculoskeletal stiffness [Not Recovered/Not Resolved]
  - Joint stiffness [Unknown]
  - Product packaging issue [Unknown]
  - Pubic pain [Recovered/Resolved]
  - Product dose omission issue [Unknown]
  - Arthritis [Recovering/Resolving]
  - Spinal pain [Recovering/Resolving]
  - Hypoaesthesia [Recovering/Resolving]
  - Asthenia [Recovering/Resolving]
  - Diarrhoea [Not Recovered/Not Resolved]
  - Oral discomfort [Recovering/Resolving]
  - Pain [Recovered/Resolved]
  - Fatigue [Recovering/Resolving]
  - Decreased appetite [Recovering/Resolving]
  - Pleurisy [Recovering/Resolving]
